FAERS Safety Report 15111713 (Version 8)
Quarter: 2019Q1

REPORT INFORMATION
  Report Type: Report from Study
  Country: US (occurrence: US)
  Receive Date: 20180705
  Receipt Date: 20190322
  Transmission Date: 20190417
  Serious: Yes (Hospitalization, Other)
  Sender: FDA-Public Use
  Company Number: US-MALLINCKRODT-T201802432

PATIENT
  Sex: Female

DRUGS (7)
  1. REPOSITORY CORTICOTROPIN INJECTION [Suspect]
     Active Substance: CORTICOTROPIN
     Dosage: 64 U, 2 TIMES PER WEEK TUESDAY/FRIDAY
     Route: 058
     Dates: start: 2018, end: 2018
  2. REPOSITORY CORTICOTROPIN INJECTION [Suspect]
     Active Substance: CORTICOTROPIN
     Dosage: 64 U, 2 TIMES PER WEEK (TUESDAY/FRIDAY)
     Route: 058
     Dates: end: 2018
  3. REPOSITORY CORTICOTROPIN INJECTION [Suspect]
     Active Substance: CORTICOTROPIN
     Indication: DERMATOMYOSITIS
     Dosage: 40 UNITS/0.5 ML
     Route: 065
     Dates: start: 20160223
  4. REPOSITORY CORTICOTROPIN INJECTION [Suspect]
     Active Substance: CORTICOTROPIN
     Dosage: 64 UNITS, 2 TIMES PER WEEK (WEDNESDAY/SATURDAY)
     Route: 058
     Dates: start: 2018, end: 2018
  5. REPOSITORY CORTICOTROPIN INJECTION [Suspect]
     Active Substance: CORTICOTROPIN
     Dosage: 40 UNITS/0.5 ML  2 TIMES PER WEEK (WEDNESDAY/SATURDAY)
     Route: 058
  6. REPOSITORY CORTICOTROPIN INJECTION [Suspect]
     Active Substance: CORTICOTROPIN
     Dosage: 40 UNITS/0.5 ML, ONCE A WEEK
     Route: 058
     Dates: start: 201811, end: 20190227
  7. REPOSITORY CORTICOTROPIN INJECTION [Suspect]
     Active Substance: CORTICOTROPIN
     Dosage: 64 UNITS, 2 TIMES PER WEEK (WEDNESDAY/SATURDAY)
     Route: 058
     Dates: start: 2018

REACTIONS (17)
  - Colon operation [Recovering/Resolving]
  - Cataract [Unknown]
  - Basal cell carcinoma [Not Recovered/Not Resolved]
  - Gastrointestinal disorder [Unknown]
  - Wound [Recovering/Resolving]
  - Fatigue [Not Recovered/Not Resolved]
  - Oedema [Unknown]
  - Underdose [Unknown]
  - Dermatomyositis [Unknown]
  - Dyspepsia [Not Recovered/Not Resolved]
  - Immunodeficiency [Unknown]
  - Product dose omission [Unknown]
  - Pain [Not Recovered/Not Resolved]
  - Haemorrhage [Unknown]
  - Diverticulitis [Recovering/Resolving]
  - Diabetes mellitus [Unknown]
  - Condition aggravated [Unknown]

NARRATIVE: CASE EVENT DATE: 2018
